FAERS Safety Report 12937401 (Version 1)
Quarter: 2016Q4

REPORT INFORMATION
  Report Type: Spontaneous
  Country: US (occurrence: US)
  Receive Date: 20161114
  Receipt Date: 20161114
  Transmission Date: 20170207
  Serious: No
  Sender: FDA-Public Use
  Company Number: US-GALDERMA-US15008145

PATIENT
  Age: 42 Year
  Sex: Female

DRUGS (8)
  1. CHLOROQUINE. [Concomitant]
     Active Substance: CHLOROQUINE
     Indication: CHRONIC CUTANEOUS LUPUS ERYTHEMATOSUS
     Route: 048
  2. NEUTROGENA SHEAR SUNSCREEN [Concomitant]
     Indication: PROPHYLAXIS AGAINST SOLAR RADIATION
     Route: 061
  3. CLOBEX [Suspect]
     Active Substance: CLOBETASOL PROPIONATE
     Indication: CHRONIC CUTANEOUS LUPUS ERYTHEMATOSUS
     Dosage: 0.05%
     Route: 061
     Dates: start: 2013
  4. THALIDOMIDE [Concomitant]
     Active Substance: THALIDOMIDE
     Indication: CHRONIC CUTANEOUS LUPUS ERYTHEMATOSUS
     Route: 048
  5. PROGRAF [Concomitant]
     Active Substance: TACROLIMUS\TACROLIMUS ANHYDROUS
     Indication: CHRONIC CUTANEOUS LUPUS ERYTHEMATOSUS
     Route: 061
  6. CETAPHIL [Concomitant]
     Active Substance: AVOBENZONE\OCTOCRYLENE\TRICLOSAN
     Indication: THERAPEUTIC SKIN CARE TOPICAL
     Route: 061
  7. HOMEMADE SOAP WITH GOAT^S MILK AND OATMEAL [Concomitant]
     Indication: THERAPEUTIC SKIN CARE TOPICAL
     Route: 061
  8. UNKNOWN STEROID CREAM [Concomitant]
     Active Substance: UNSPECIFIED INGREDIENT
     Route: 061

REACTIONS (2)
  - Product use issue [Not Recovered/Not Resolved]
  - Intentional product use issue [Not Recovered/Not Resolved]
